FAERS Safety Report 20554791 (Version 5)
Quarter: 2022Q4

REPORT INFORMATION
  Report Type: Report from Study
  Country: CA (occurrence: CA)
  Receive Date: 20220304
  Receipt Date: 20221121
  Transmission Date: 20230112
  Serious: Yes (Other)
  Sender: FDA-Public Use
  Company Number: CA-OTSUKA-2020_008311

PATIENT
  Age: 29 Year
  Sex: Male

DRUGS (10)
  1. ARIPIPRAZOLE [Suspect]
     Active Substance: ARIPIPRAZOLE
     Indication: Product used for unknown indication
     Dosage: 400 MG, EVERY 2 WEEKS
     Route: 030
  2. ARIPIPRAZOLE [Suspect]
     Active Substance: ARIPIPRAZOLE
     Dosage: 600 MG, EVERY 2 WEEKS
     Route: 030
  3. ARIPIPRAZOLE [Suspect]
     Active Substance: ARIPIPRAZOLE
     Dosage: 600 MG, EVERY 3 WEEKS
     Route: 030
  4. ARIPIPRAZOLE [Suspect]
     Active Substance: ARIPIPRAZOLE
     Dosage: 800MG, EVERY 4 WEEKS
     Route: 030
  5. ARIPIPRAZOLE [Suspect]
     Active Substance: ARIPIPRAZOLE
     Dosage: 800 MG EVERY 21 DAYS
     Route: 030
  6. ABILIFY [Suspect]
     Active Substance: ARIPIPRAZOLE
     Indication: Product used for unknown indication
     Dosage: UNK (AS NEEDED)
     Route: 048
  7. ABILIFY [Suspect]
     Active Substance: ARIPIPRAZOLE
     Dosage: 5 MG, QD
     Route: 048
  8. LITHIUM [Suspect]
     Active Substance: LITHIUM
     Indication: Product used for unknown indication
     Dosage: 1200 MG, UNK
     Route: 065
  9. LITHIUM [Suspect]
     Active Substance: LITHIUM
     Dosage: 300 MG, UNK
     Route: 065
  10. LITHIUM [Suspect]
     Active Substance: LITHIUM
     Dosage: UNK
     Route: 065

REACTIONS (16)
  - Hallucination, visual [Unknown]
  - Hallucination, auditory [Recovered/Resolved]
  - Hallucination, auditory [Not Recovered/Not Resolved]
  - Hallucination [Not Recovered/Not Resolved]
  - Blood test abnormal [Unknown]
  - Stress [Not Recovered/Not Resolved]
  - Sensory overload [Unknown]
  - Influenza like illness [Unknown]
  - Gastrooesophageal reflux disease [Unknown]
  - Depression [Recovered/Resolved]
  - Insomnia [Unknown]
  - Agitation [Not Recovered/Not Resolved]
  - Restlessness [Not Recovered/Not Resolved]
  - Inappropriate schedule of product administration [Unknown]
  - Intentional product misuse [Unknown]
  - Overdose [Unknown]

NARRATIVE: CASE EVENT DATE: 20200409
